FAERS Safety Report 7457733-2 (Version None)
Quarter: 2011Q2

REPORT INFORMATION
  Report Type: 
  Country: None (occurrence: None)
  Receive Date: 20110504
  Receipt Date: 20110428
  Transmission Date: 20111010
  Serious: Yes (Other)
  Sender: FDA-Public Use
  Company Number: US-ROCHE-774204

PATIENT
  Sex: Male

DRUGS (2)
  1. XELODA [Suspect]
     Route: 065
     Dates: start: 20100923
  2. XELODA [Suspect]
     Dosage: DOSE INCREASED
     Route: 065
     Dates: start: 20110201

REACTIONS (2)
  - ACUTE LEUKAEMIA [None]
  - PANCYTOPENIA [None]
